FAERS Safety Report 17005352 (Version 2)
Quarter: 2019Q4

REPORT INFORMATION
  Report Type: Report from Study
  Country: US (occurrence: US)
  Receive Date: 20191107
  Receipt Date: 20191112
  Transmission Date: 20200122
  Serious: No
  Sender: FDA-Public Use
  Company Number: US-BEH-2019108929

PATIENT
  Age: 74 Year
  Sex: Female

DRUGS (2)
  1. HIZENTRA [Suspect]
     Active Substance: HUMAN IMMUNOGLOBULIN G
     Dosage: UNK
     Route: 058
     Dates: start: 20190919, end: 20191017
  2. HIZENTRA [Suspect]
     Active Substance: HUMAN IMMUNOGLOBULIN G
     Indication: CHRONIC INFLAMMATORY DEMYELINATING POLYRADICULONEUROPATHY
     Dosage: UNK
     Route: 058

REACTIONS (12)
  - Erythema [Recovered/Resolved]
  - No adverse event [Unknown]
  - Pain [Unknown]
  - Abdominal pain [Unknown]
  - Discomfort [Unknown]
  - Abdominal distension [Recovered/Resolved]
  - Injection site bruising [Unknown]
  - Injection site pain [Unknown]
  - Product dose omission [Unknown]
  - Rash macular [Unknown]
  - Skin striae [Unknown]
  - Gastrointestinal disorder [Unknown]
